FAERS Safety Report 21002597 (Version 1)
Quarter: 2022Q2

REPORT INFORMATION
  Report Type: Spontaneous
  Country: US (occurrence: US)
  Receive Date: 20220624
  Receipt Date: 20220624
  Transmission Date: 20220721
  Serious: No
  Sender: FDA-Public Use
  Company Number: US-BioHaven Pharmaceuticals-2022BHV001308

PATIENT
  Age: 61 Year
  Sex: Female
  Weight: 86.714 kg

DRUGS (3)
  1. NURTEC ODT [Suspect]
     Active Substance: RIMEGEPANT SULFATE
     Indication: Migraine
     Dosage: PRODUCT START DATE: ^ACTUALLY I^M NOT REAL SURE. IT^S BEEN MONTHS.^ / IF THE FIRST PILL DIDN^T WORK,
     Route: 065
     Dates: end: 20220505
  2. NURTEC ODT [Suspect]
     Active Substance: RIMEGEPANT SULFATE
     Indication: Headache
  3. IMITREX [Concomitant]
     Active Substance: SUMATRIPTAN SUCCINATE
     Indication: Headache
     Route: 065

REACTIONS (2)
  - Drug ineffective [Unknown]
  - Migraine [Unknown]
